FAERS Safety Report 5630480-5 (Version None)
Quarter: 2008Q1

REPORT INFORMATION
  Report Type: 
  Country: None (occurrence: None)
  Receive Date: 20080213
  Receipt Date: 20080204
  Transmission Date: 20080703
  Serious: Yes (Death)
  Sender: FDA-Public Use
  Company Number: 2008-00960

PATIENT
  Age: 21 Year
  Sex: Female

DRUGS (4)
  1. FIORICET 50/328/40         (BUTALBITAL , ACETAMINOPHEN , CAFFEINE ) [Suspect]
  2. HYDROCODONE BITARTRATE/ACETAMINOPHEN ,   HYDROCODONE BITARTRATE [Suspect]
  3. IBUPROFEN [Suspect]
  4. CYCLOBENZAPRINE HYDROCHLORID           (CYCLOBENZAPRINE HYDROCHLORIDE) [Suspect]

REACTIONS (1)
  - DEATH [None]
